FAERS Safety Report 13040308 (Version 1)
Quarter: 2016Q4

REPORT INFORMATION
  Report Type: Spontaneous
  Country: US (occurrence: US)
  Receive Date: 20161217
  Receipt Date: 20161217
  Transmission Date: 20170207
  Serious: Yes (Hospitalization)
  Sender: FDA-Public Use
  Company Number: None

PATIENT
  Age: 72 Year
  Sex: Male
  Weight: 86 kg

DRUGS (1)
  1. INTRON A [Suspect]
     Active Substance: INTERFERON ALFA-2B
     Dates: end: 20120411

REACTIONS (2)
  - Back pain [None]
  - Osteoarthritis [None]

NARRATIVE: CASE EVENT DATE: 20120412
